FAERS Safety Report 7746781-0 (Version None)
Quarter: 2011Q3

REPORT INFORMATION
  Report Type: 
  Country: None (occurrence: None)
  Receive Date: 20110907
  Receipt Date: 20110825
  Transmission Date: 20111222
  Serious: Yes (Life-Threatening)
  Sender: FDA-Public Use
  Company Number: 1024995

PATIENT
  Sex: Male

DRUGS (3)
  1. GENTAMICIN SULFATE [Suspect]
  2. (TEICOPLANIN) [Suspect]
  3. ANAESTHETICS [Concomitant]

REACTIONS (1)
  - ANAPHYLACTIC REACTION [None]
